FAERS Safety Report 9743843 (Version 1)
Quarter: 2013Q4

REPORT INFORMATION
  Report Type: Spontaneous
  Country: US (occurrence: US)
  Receive Date: 20131210
  Receipt Date: 20131210
  Transmission Date: 20140711
  Serious: No
  Sender: FDA-Public Use
  Company Number: US-BIOGENIDEC-2013BI096792

PATIENT
  Age: 40 Year
  Sex: Female

DRUGS (1)
  1. TECFIDERA [Suspect]
     Indication: MULTIPLE SCLEROSIS
     Route: 048
     Dates: start: 20130516

REACTIONS (6)
  - Dizziness [Unknown]
  - Fall [Recovered/Resolved]
  - Loss of consciousness [Unknown]
  - Back injury [Unknown]
  - Bone contusion [Unknown]
  - Nausea [Unknown]
